FAERS Safety Report 11524982 (Version 2)
Quarter: 2015Q3

REPORT INFORMATION
  Report Type: Report from Study
  Country: BR (occurrence: BR)
  Receive Date: 20150918
  Receipt Date: 20150924
  Transmission Date: 20151125
  Serious: Yes (Death, Other)
  Sender: FDA-Public Use
  Company Number: PHHY2015BR112695

PATIENT
  Sex: Female
  Weight: 27 kg

DRUGS (3)
  1. DONAREN [Suspect]
     Active Substance: TRAZODONE HYDROCHLORIDE
     Indication: IRRITABILITY
     Dosage: 1 DF, QD
     Route: 048
     Dates: start: 2008
  2. DONAREN [Suspect]
     Active Substance: TRAZODONE HYDROCHLORIDE
     Dosage: 2 DF, QD
     Route: 048
     Dates: end: 2014
  3. EXELON [Suspect]
     Active Substance: RIVASTIGMINE TARTRATE
     Indication: DEMENTIA ALZHEIMER^S TYPE
     Dosage: 50 ML, QD
     Route: 048
     Dates: start: 2001, end: 2012

REACTIONS (4)
  - Agitation [Recovering/Resolving]
  - Cardiac arrest [Fatal]
  - Asthenia [Not Recovered/Not Resolved]
  - Weight decreased [Not Recovered/Not Resolved]

NARRATIVE: CASE EVENT DATE: 2008
